FAERS Safety Report 8069431-5 (Version None)
Quarter: 2012Q1

REPORT INFORMATION
  Report Type: 
  Country: None (occurrence: None)
  Receive Date: 20120125
  Receipt Date: 20120118
  Transmission Date: 20120608
  Serious: Yes (Death, Hospitalization)
  Sender: FDA-Public Use
  Company Number: US-CELGENEUS-163-21880-12011382

PATIENT
  Sex: Female

DRUGS (12)
  1. GLYBURIDE [Concomitant]
     Route: 065
  2. ACETAMINOPHEN [Concomitant]
     Route: 065
  3. OMEPRAZOLE [Concomitant]
     Route: 065
  4. GLUCOPHAGE [Concomitant]
     Route: 065
  5. COUMADIN [Concomitant]
     Route: 065
     Dates: start: 20110525, end: 20111120
  6. SYNTHROID [Concomitant]
     Route: 065
  7. METOPROLOL [Concomitant]
     Route: 065
  8. CITRACAL + D [Concomitant]
     Route: 065
  9. OXYCODONE HCL [Concomitant]
     Route: 065
  10. FERROUS SULFATE TAB [Concomitant]
     Route: 065
  11. REVLIMID [Suspect]
     Dosage: 10 MILLIGRAM
     Route: 048
     Dates: start: 20110525, end: 20111120
  12. DECADRON [Concomitant]
     Route: 065

REACTIONS (6)
  - DEHYDRATION [None]
  - URINARY TRACT INFECTION [None]
  - ASTHENIA [None]
  - MULTIPLE MYELOMA [None]
  - INTERNATIONAL NORMALISED RATIO INCREASED [None]
  - CONFUSIONAL STATE [None]
